FAERS Safety Report 18715613 (Version 1)
Quarter: 2021Q1

REPORT INFORMATION
  Report Type: Spontaneous
  Country: US (occurrence: US)
  Receive Date: 20210108
  Receipt Date: 20210108
  Transmission Date: 20210419
  Serious: No
  Sender: FDA-Public Use
  Company Number: US-JNJFOC-20201239586

PATIENT
  Sex: Female

DRUGS (1)
  1. TYLENOL 8 HR ARTHRITIS PAIN [Suspect]
     Active Substance: ACETAMINOPHEN
     Indication: ARTHRALGIA
     Dosage: DAILY 1 PILL
     Route: 048

REACTIONS (5)
  - Incorrect dose administered [Unknown]
  - Flushing [Unknown]
  - Paraesthesia [Unknown]
  - Incorrect product administration duration [Unknown]
  - Sensory disturbance [Unknown]
